FAERS Safety Report 7118794-3 (Version None)
Quarter: 2010Q4

REPORT INFORMATION
  Report Type: 
  Country: None (occurrence: None)
  Receive Date: 20101123
  Receipt Date: 20100907
  Transmission Date: 20110411
  Serious: No
  Sender: FDA-Public Use
  Company Number: US-KINGPHARMUSA00001-K201001138

PATIENT
  Sex: Female

DRUGS (2)
  1. FLECTOR [Suspect]
     Indication: OSTEOARTHRITIS
     Dosage: 1 PATCH, 4 TIMES
     Route: 061
  2. FLECTOR [Suspect]
     Dosage: UNK PATCH, (CUT INTO PIECES)
     Route: 061

REACTIONS (2)
  - GASTROINTESTINAL PAIN [None]
  - NAUSEA [None]
